FAERS Safety Report 10074523 (Version 1)
Quarter: 2014Q2

REPORT INFORMATION
  Report Type: Spontaneous
  Country: US (occurrence: US)
  Receive Date: 20140411
  Receipt Date: 20140411
  Transmission Date: 20141212
  Serious: No
  Sender: FDA-Public Use
  Company Number: US-SA-2013SA125088

PATIENT
  Age: 59 Year
  Sex: Female
  Weight: 90.72 kg

DRUGS (1)
  1. ALLEGRA D [Suspect]
     Indication: ALLERGIC SINUSITIS
     Dosage: TAKEN FROM: ABOUT A YEAR AGO
     Route: 048
     Dates: start: 2012

REACTIONS (2)
  - Medication residue present [Unknown]
  - Underdose [Unknown]
